FAERS Safety Report 11759657 (Version 1)
Quarter: 2015Q4

REPORT INFORMATION
  Report Type: Spontaneous
  Country: US (occurrence: US)
  Receive Date: 20151120
  Receipt Date: 20151120
  Transmission Date: 20160304
  Serious: No
  Sender: FDA-Public Use
  Company Number: US-JNJFOC-20150915873

PATIENT
  Age: 65 Year
  Sex: Female
  Weight: 62.14 kg

DRUGS (5)
  1. LEVOTHYROXINE. [Concomitant]
     Active Substance: LEVOTHYROXINE
     Indication: HYPOTHYROIDISM
     Route: 065
  2. WOMENS ROGAINE UNSCENTED [Suspect]
     Active Substance: MINOXIDIL
     Indication: ALOPECIA
     Dosage: HALF A CAP, ONCE A DAY IN THE MORNING
     Route: 061
     Dates: start: 201504
  3. WOMENS ROGAINE UNSCENTED [Suspect]
     Active Substance: MINOXIDIL
     Route: 061
  4. BIOTIN [Concomitant]
     Active Substance: BIOTIN
     Indication: HAIR DISORDER
     Route: 065
  5. MULTIVITAMINS [Concomitant]
     Active Substance: VITAMINS
     Indication: SUPPLEMENTATION THERAPY
     Route: 065

REACTIONS (3)
  - Pruritus [Not Recovered/Not Resolved]
  - Product use issue [Unknown]
  - Weight increased [Not Recovered/Not Resolved]
